FAERS Safety Report 10818132 (Version 1)
Quarter: 2015Q1

REPORT INFORMATION
  Report Type: Spontaneous
  Country: US (occurrence: US)
  Receive Date: 20150218
  Receipt Date: 20150218
  Transmission Date: 20150721
  Serious: Yes (Other)
  Sender: FDA-Public Use
  Company Number: US-BAYER-2015-024080

PATIENT
  Sex: Male

DRUGS (1)
  1. BAYER GENUINE ASPIRIN [Suspect]
     Active Substance: ASPIRIN
     Dosage: UNK
     Route: 048

REACTIONS (2)
  - Eye haemorrhage [Unknown]
  - Extra dose administered [Unknown]
